FAERS Safety Report 17788967 (Version 2)
Quarter: 2020Q2

REPORT INFORMATION
  Report Type: Spontaneous
  Country: ES (occurrence: ES)
  Receive Date: 20200514
  Receipt Date: 20200601
  Transmission Date: 20200714
  Serious: Yes (Other)
  Sender: FDA-Public Use
  Company Number: ES-BAYER-2020-084744

PATIENT
  Age: 35 Year
  Sex: Female
  Weight: 55 kg

DRUGS (1)
  1. KYLEENA [Suspect]
     Active Substance: LEVONORGESTREL
     Indication: CONTRACEPTION
     Dosage: 17.5 ?G PER DAY, CONTINUOUSLY
     Route: 015
     Dates: start: 20190401, end: 20200512

REACTIONS (7)
  - Vaginal haemorrhage [None]
  - Adnexa uteri mass [None]
  - Drug ineffective [None]
  - Back pain [None]
  - Ectopic pregnancy with contraceptive device [None]
  - Ruptured ectopic pregnancy [Recovered/Resolved]
  - Haemoperitoneum [Recovered/Resolved]

NARRATIVE: CASE EVENT DATE: 202001
